FAERS Safety Report 9609352 (Version 2)
Quarter: 2013Q4

REPORT INFORMATION
  Report Type: Report from Study
  Country: CA (occurrence: CA)
  Receive Date: 20131009
  Receipt Date: 20131009
  Transmission Date: 20140711
  Serious: Yes (Hospitalization, Other)
  Sender: FDA-Public Use
  Company Number: CA-JNJFOC-20130901842

PATIENT
  Age: 63 Year
  Sex: Female
  Weight: 73.03 kg

DRUGS (3)
  1. REMICADE [Suspect]
     Indication: CROHN^S DISEASE
     Route: 042
     Dates: start: 20050421
  2. REMICADE [Suspect]
     Indication: CROHN^S DISEASE
     Dosage: 2001 OR 2002
     Route: 042
  3. REMICADE [Suspect]
     Indication: CROHN^S DISEASE
     Route: 042
     Dates: start: 20130719, end: 2013

REACTIONS (4)
  - Incision site infection [Unknown]
  - Gastric perforation [Unknown]
  - Cholelithiasis [Unknown]
  - Weight decreased [Unknown]
